FAERS Safety Report 4519954-8 (Version None)
Quarter: 2004Q4

REPORT INFORMATION
  Report Type: 
  Country: None (occurrence: None)
  Receive Date: 20041207
  Receipt Date: 20041018
  Transmission Date: 20050328
  Serious: Yes (Hospitalization, Disabling)
  Sender: FDA-Public Use
  Company Number: DE-MERCK-0410DEU00578

PATIENT
  Age: 60 Year
  Sex: Female
  Weight: 100 kg

DRUGS (6)
  1. VIOXX [Suspect]
     Indication: PAIN
     Route: 048
     Dates: start: 20021030, end: 20040424
  2. VIOXX [Suspect]
     Indication: SPINAL COLUMN STENOSIS
     Route: 048
     Dates: start: 20021030, end: 20040424
  3. ACETYLCYSTEINE [Concomitant]
     Indication: ASTHMA
     Route: 065
     Dates: start: 19940101
  4. THEOPHYLLINE [Concomitant]
     Indication: ASTHMA
     Route: 065
     Dates: start: 19990101, end: 20040101
  5. SALMETEROL XINAFOATE [Concomitant]
     Indication: ASTHMA
     Route: 065
     Dates: start: 20000101, end: 20040101
  6. CROMOLYN SODIUM AND REPROTEROL HYDROCHLORIDE [Concomitant]
     Indication: ASTHMA
     Route: 065
     Dates: start: 19990101, end: 20040101

REACTIONS (3)
  - CEREBELLAR INFARCTION [None]
  - GAIT DISTURBANCE [None]
  - HEMIAPRAXIA [None]
